FAERS Safety Report 10138927 (Version 1)
Quarter: 2014Q2

REPORT INFORMATION
  Report Type: Spontaneous
  Country: GB (occurrence: GB)
  Receive Date: 20140429
  Receipt Date: 20140429
  Transmission Date: 20141212
  Serious: Yes (Disabling)
  Sender: FDA-Public Use
  Company Number: GB-ACTAVIS-2014-08184

PATIENT
  Age: 62 Year
  Sex: Female

DRUGS (14)
  1. DOXYCYCLINE HYCLATE (UNKNOWN) [Suspect]
     Indication: SINUSITIS
     Dosage: 100 MG, DAILY; 200MG TO START AND THEN 100MG DAILY
     Route: 048
     Dates: start: 20140228, end: 20140307
  2. ATENOLOL [Concomitant]
     Indication: PRODUCT USED FOR UNKNOWN INDICATION
     Dosage: 50 MG, DAILY
     Route: 065
  3. CLONIDINE [Concomitant]
     Indication: FLUSHING
     Dosage: 50 MG, TID
     Route: 065
  4. DILTIAZEM [Concomitant]
     Indication: PRODUCT USED FOR UNKNOWN INDICATION
     Dosage: 120 MG, DAILY; MODIFIED RELEASE
     Route: 065
  5. DOXEPIN [Concomitant]
     Indication: PRURITUS
     Dosage: THREE TIMES DAILY PRN
     Route: 065
  6. DUROGESIC [Concomitant]
     Indication: BACK PAIN
     Dosage: 2 PATCHES EVERY 72 HOURS
     Route: 065
  7. FEXOFENADINE [Concomitant]
     Indication: PRODUCT USED FOR UNKNOWN INDICATION
     Dosage: 120 MG, UNKNOWN
     Route: 065
  8. IBUPROFEN [Concomitant]
     Indication: PRODUCT USED FOR UNKNOWN INDICATION
     Dosage: 400 MG, TID, PRN
     Route: 065
  9. LOPERAMIDE [Concomitant]
     Indication: PRODUCT USED FOR UNKNOWN INDICATION
     Dosage: AS REQUIRED
     Route: 065
  10. LOSARTAN [Concomitant]
     Indication: HYPERTENSION
     Dosage: 100 MG, DAILY
     Route: 065
  11. OMEPRAZOLE [Concomitant]
     Indication: PRODUCT USED FOR UNKNOWN INDICATION
     Dosage: 20 MG, UNKNOWN
     Route: 065
  12. PARACETAMOL [Concomitant]
     Indication: PRODUCT USED FOR UNKNOWN INDICATION
     Dosage: 1 G, QID
     Route: 065
  13. PROCHLORPERAZINE [Concomitant]
     Indication: PRODUCT USED FOR UNKNOWN INDICATION
     Dosage: 3 MG, UNK; 1-2 THREE TIMES DAILY - WHEN REQUIRED
     Route: 065
  14. SIMVASTATIN [Concomitant]
     Indication: HYPERCHOLESTEROLAEMIA
     Dosage: 40 MG, UNKNOWN
     Route: 065

REACTIONS (1)
  - Tongue discolouration [Recovering/Resolving]
